FAERS Safety Report 12924046 (Version 1)
Quarter: 2016Q4

REPORT INFORMATION
  Report Type: Spontaneous
  Country: NL (occurrence: NL)
  Receive Date: 20161109
  Receipt Date: 20161109
  Transmission Date: 20170207
  Serious: Yes (Other)
  Sender: FDA-Public Use
  Company Number: NL-ASTRAZENECA-2016SF15356

PATIENT
  Age: 55 Year
  Sex: Male
  Weight: 90 kg

DRUGS (6)
  1. ESOMEPRAZOL [Suspect]
     Active Substance: ESOMEPRAZOLE
     Indication: GASTRIC DISORDER
     Dosage: 1.0DF UNKNOWN
     Route: 048
  2. CODIOVAN [Concomitant]
     Active Substance: HYDROCHLOROTHIAZIDE\VALSARTAN
     Dosage: 80/12,5MG, 1 DF UNKNOWN
     Route: 048
     Dates: start: 2009
  3. ESOMEPRAZOL [Suspect]
     Active Substance: ESOMEPRAZOLE
     Indication: GASTRIC DISORDER
     Dosage: 1.0DF UNKNOWN
     Route: 048
     Dates: start: 2009
  4. PRAVASTATIN. [Concomitant]
     Active Substance: PRAVASTATIN
     Dosage: 1.0DF UNKNOWN
     Route: 048
     Dates: start: 2009
  5. ASCAL CARDIO [Concomitant]
     Active Substance: CARBASPIRIN
     Dosage: 1.0DF UNKNOWN
     Route: 048
     Dates: start: 2009
  6. METOPROLOL. [Concomitant]
     Active Substance: METOPROLOL
     Dosage: 1.0DF UNKNOWN
     Route: 048
     Dates: start: 2009

REACTIONS (4)
  - Post procedural haemorrhage [Not Recovered/Not Resolved]
  - Procedural pain [Not Recovered/Not Resolved]
  - Anal fistula [Not Recovered/Not Resolved]
  - Local swelling [Not Recovered/Not Resolved]
